FAERS Safety Report 7344120-0 (Version None)
Quarter: 2011Q1

REPORT INFORMATION
  Report Type: 
  Country: None (occurrence: None)
  Receive Date: 20110310
  Receipt Date: 20100623
  Transmission Date: 20110831
  Serious: No
  Sender: FDA-Public Use
  Company Number: A0866703A

PATIENT
  Age: 59 Year
  Sex: Female

DRUGS (2)
  1. NICODERM CQ [Suspect]
  2. MEMBERS MARK NICOTINE GUM 2MG, ORIGINAL [Suspect]
     Dates: start: 20100519

REACTIONS (4)
  - APPLICATION SITE RASH [None]
  - STOMATITIS [None]
  - ORAL PAIN [None]
  - EXPIRED DRUG ADMINISTERED [None]
